FAERS Safety Report 7139251-4 (Version None)
Quarter: 2010Q4

REPORT INFORMATION
  Report Type: 
  Country: None (occurrence: None)
  Receive Date: 20101206
  Receipt Date: 20101124
  Transmission Date: 20110411
  Serious: Yes (Hospitalization)
  Sender: FDA-Public Use
  Company Number: JP-AMGEN-JPNCT2010007480

PATIENT

DRUGS (6)
  1. PANITUMUMAB [Suspect]
     Indication: COLORECTAL CANCER
     Dosage: 6 MG/KG, Q2WK
     Route: 041
     Dates: start: 20100720, end: 20100907
  2. MINOCYCLINE HCL [Suspect]
     Route: 065
  3. LOCOID CREAM [Concomitant]
     Route: 062
  4. HIRUDOID SOFT OINTMENT [Concomitant]
     Route: 062
  5. COLONEL [Concomitant]
     Route: 048
  6. LOPEMIN [Concomitant]
     Route: 048

REACTIONS (5)
  - DERMATITIS ACNEIFORM [None]
  - HYPERBILIRUBINAEMIA [None]
  - HYPOMAGNESAEMIA [None]
  - NAUSEA [None]
  - PAIN [None]
